FAERS Safety Report 9994733 (Version 1)
Quarter: 2014Q1

REPORT INFORMATION
  Report Type: Spontaneous
  Country: US (occurrence: None)
  Receive Date: 20140307
  Receipt Date: 20140307
  Transmission Date: 20141002
  Serious: Yes (Other)
  Sender: FDA-Public Use
  Company Number: None

PATIENT
  Age: 64 Year
  Sex: Male

DRUGS (8)
  1. ZYTIGA [Suspect]
     Indication: PROSTATE CANCER
     Route: 048
     Dates: start: 20121030, end: 20140306
  2. PREDNISONE [Concomitant]
  3. IBUPROFEN [Concomitant]
  4. MULTIVITAMIN [Concomitant]
  5. ZOLPIDEM [Concomitant]
  6. METAMUCIL [Concomitant]
  7. FENTANYL [Concomitant]
  8. CALCIUM [Concomitant]

REACTIONS (1)
  - Disease progression [None]
